FAERS Safety Report 18205293 (Version 3)
Quarter: 2020Q4

REPORT INFORMATION
  Report Type: Report from Study
  Country: US (occurrence: US)
  Receive Date: 20200827
  Receipt Date: 20201121
  Transmission Date: 20210113
  Serious: No
  Sender: FDA-Public Use
  Company Number: NVSC2020US237151

PATIENT
  Sex: Female

DRUGS (1)
  1. PIQRAY [Suspect]
     Active Substance: ALPELISIB
     Indication: PRODUCT USED FOR UNKNOWN INDICATION
     Dosage: UNK
     Route: 048

REACTIONS (6)
  - Dry mouth [Unknown]
  - Aptyalism [Unknown]
  - Diarrhoea [Unknown]
  - Hypogeusia [Unknown]
  - Abdominal pain upper [Unknown]
  - Drug ineffective [Unknown]
